FAERS Safety Report 11276996 (Version 3)
Quarter: 2015Q3

REPORT INFORMATION
  Report Type: Spontaneous
  Country: US (occurrence: US)
  Receive Date: 20150716
  Receipt Date: 20150911
  Transmission Date: 20151125
  Serious: No
  Sender: FDA-Public Use
  Company Number: US-009507513-1507USA007588

PATIENT
  Age: 20 Year
  Weight: 76.1 kg

DRUGS (1)
  1. IMPLANON [Suspect]
     Active Substance: ETONOGESTREL
     Dosage: 1 ROD, EVERY 3 YEARS
     Route: 059
     Dates: start: 20120731

REACTIONS (2)
  - Drug dose omission [Unknown]
  - Medical device complication [Unknown]

NARRATIVE: CASE EVENT DATE: 20150623
